FAERS Safety Report 5608186-8 (Version None)
Quarter: 2008Q1

REPORT INFORMATION
  Report Type: 
  Country: None (occurrence: None)
  Receive Date: 20080130
  Receipt Date: 20080118
  Transmission Date: 20080703
  Serious: Yes (Hospitalization)
  Sender: FDA-Public Use
  Company Number: US-ELI_LILLY_AND_COMPANY-US200801003994

PATIENT
  Age: 62 Year
  Sex: Female

DRUGS (12)
  1. HUMULIN N [Suspect]
     Dates: start: 19830101
  2. HUMULIN R [Suspect]
     Dates: start: 19830101
  3. LANTUS [Concomitant]
     Dates: start: 19830101
  4. NOVOLIN N [Concomitant]
  5. NOVOLIN R [Concomitant]
  6. DIOVAN [Concomitant]
  7. LASIX [Concomitant]
     Dates: end: 20071001
  8. METOPROLOL TARTRATE [Concomitant]
  9. NISTATIN [Concomitant]
     Indication: FUNGAL INFECTION
  10. GLYBURIDE [Concomitant]
  11. METFORMIN HCL [Concomitant]
  12. AVANDIA [Concomitant]

REACTIONS (8)
  - ADVERSE DRUG REACTION [None]
  - BLISTER [None]
  - BLOOD GLUCOSE FLUCTUATION [None]
  - CARDIAC FAILURE CONGESTIVE [None]
  - FUNGAL SKIN INFECTION [None]
  - GAIT DISTURBANCE [None]
  - OEDEMA PERIPHERAL [None]
  - PRURITUS [None]
